FAERS Safety Report 17289994 (Version 1)
Quarter: 2020Q1

REPORT INFORMATION
  Report Type: Spontaneous
  Country: US (occurrence: US)
  Receive Date: 20200120
  Receipt Date: 20200120
  Transmission Date: 20200409
  Serious: No
  Sender: FDA-Public Use
  Company Number: US-TARO-2019TAR00170

PATIENT
  Age: 21 Year
  Sex: Female
  Weight: 62.3 kg

DRUGS (1)
  1. CLOMIPRAMINE HCL CAPSULES 50 MG [Suspect]
     Active Substance: CLOMIPRAMINE HYDROCHLORIDE
     Dosage: 100 MG, 1X/DAY AT BEDTIME
     Route: 048
     Dates: start: 20181227

REACTIONS (2)
  - Foreign body in respiratory tract [Recovered/Resolved]
  - Pain [Recovered/Resolved]
